FAERS Safety Report 7475116-6 (Version None)
Quarter: 2011Q2

REPORT INFORMATION
  Report Type: 
  Country: None (occurrence: None)
  Receive Date: 20110509
  Receipt Date: 20110509
  Transmission Date: 20111010
  Serious: Yes (Life-Threatening)
  Sender: FDA-Public Use
  Company Number: None

PATIENT
  Age: 47 Year
  Sex: Female
  Weight: 77.1115 kg

DRUGS (1)
  1. HYDROCHLOROTHIAZIDE [Suspect]
     Indication: HYPERTENSION
     Dosage: 1 TABLE 1 TIME/DAY
     Dates: start: 20110201, end: 20110418

REACTIONS (3)
  - CROSS SENSITIVITY REACTION [None]
  - ARTHRALGIA [None]
  - ANGIOEDEMA [None]
